FAERS Safety Report 7561582-4 (Version None)
Quarter: 2011Q2

REPORT INFORMATION
  Report Type: 
  Country: None (occurrence: None)
  Receive Date: 20110621
  Receipt Date: 20100617
  Transmission Date: 20111010
  Serious: No
  Sender: FDA-Public Use
  Company Number: US-ASTRAZENECA-2010SE28637

PATIENT
  Age: 71 Year
  Sex: Female

DRUGS (4)
  1. LEVOXYL [Concomitant]
  2. COUMADIN [Concomitant]
  3. PULMICORT FLEXHALER [Suspect]
     Dosage: ONE PUFF TWICE A DAY
     Route: 055
  4. ZESTORETIC [Concomitant]

REACTIONS (2)
  - DIZZINESS [None]
  - FATIGUE [None]
